FAERS Safety Report 19911434 (Version 1)
Quarter: 2021Q4

REPORT INFORMATION
  Report Type: Spontaneous
  Country: US (occurrence: US)
  Receive Date: 20211001
  Receipt Date: 20211001
  Transmission Date: 20220303
  Serious: No
  Sender: FDA-Public Use
  Company Number: None

PATIENT
  Age: 48 Year
  Sex: Female

DRUGS (3)
  1. COPPERTONE PURE AND SIMPLE SUNSCREEN SPF 50 [Suspect]
     Active Substance: ZINC OXIDE
     Indication: Prophylaxis against solar radiation
     Dosage: ?          QUANTITY:2 SPRAY;OTHER ROUTE:SPRAYED ON SKIN
     Dates: start: 20210524, end: 20211001
  2. LOSARTAN [Concomitant]
     Active Substance: LOSARTAN
  3. MELATONIN [Concomitant]
     Active Substance: MELATONIN

REACTIONS (2)
  - Condition aggravated [None]
  - Product contamination chemical [None]
